FAERS Safety Report 19382784 (Version 1)
Quarter: 2021Q2

REPORT INFORMATION
  Report Type: Spontaneous
  Country: GB (occurrence: GB)
  Receive Date: 20210607
  Receipt Date: 20210607
  Transmission Date: 20210717
  Serious: Yes (Other)
  Sender: FDA-Public Use
  Company Number: GB-GLAXOSMITHKLINE-GBCH2021035647

PATIENT
  Age: 31 Year
  Sex: Female
  Weight: 64 kg

DRUGS (3)
  1. GAVISCON [Suspect]
     Active Substance: ALUMINUM HYDROXIDE\MAGNESIUM CARBONATE
     Indication: PRODUCT USED FOR UNKNOWN INDICATION
     Dosage: UNK
     Route: 065
  2. IBUPROFEN. [Suspect]
     Active Substance: IBUPROFEN
     Indication: PRODUCT USED FOR UNKNOWN INDICATION
     Dosage: UNK
     Route: 065
  3. PFIZER?BIONTECH COVID?19 VACCINE [Suspect]
     Active Substance: TOZINAMERAN
     Indication: PRODUCT USED FOR UNKNOWN INDICATION
     Dosage: UNK, (DOSE 1)
     Route: 065
     Dates: start: 20210527

REACTIONS (7)
  - Anal incontinence [Recovered/Resolved]
  - Dyspnoea [Not Recovered/Not Resolved]
  - Musculoskeletal pain [Recovered/Resolved]
  - Chest pain [Not Recovered/Not Resolved]
  - Palpitations [Not Recovered/Not Resolved]
  - Burning sensation [Recovered/Resolved]
  - Chest discomfort [Not Recovered/Not Resolved]

NARRATIVE: CASE EVENT DATE: 20210528
